FAERS Safety Report 13854207 (Version 2)
Quarter: 2017Q3

REPORT INFORMATION
  Report Type: Report from Study
  Country: GB (occurrence: GB)
  Receive Date: 20170810
  Receipt Date: 20170823
  Transmission Date: 20171127
  Serious: No
  Sender: FDA-Public Use
  Company Number: GB-GLAXOSMITHKLINE-GB2017GSK123051

PATIENT
  Sex: Female
  Weight: 69.5 kg

DRUGS (6)
  1. SEEBRI [Concomitant]
     Active Substance: GLYCOPYRRONIUM
     Indication: ASTHMA
     Dosage: UNK
     Dates: start: 20150422
  2. MEPOLIZUMAB [Suspect]
     Active Substance: MEPOLIZUMAB
     Dosage: 100 MG, SINGLE
     Route: 042
     Dates: start: 20170801, end: 20170801
  3. PREDNISOLONE. [Concomitant]
     Active Substance: PREDNISOLONE
     Dosage: 20 MG, QD
     Dates: start: 20170530
  4. MEPOLIZUMAB [Suspect]
     Active Substance: MEPOLIZUMAB
     Indication: ASTHMA
     Dosage: 100 MG, SINGLE
     Route: 042
     Dates: start: 20170704, end: 20170704
  5. FOSTAIR [Concomitant]
     Active Substance: BECLOMETHASONE\FORMOTEROL
     Dosage: 200/6 MCG
     Dates: start: 20160906
  6. SALBUTAMOL [Concomitant]
     Active Substance: ALBUTEROL
     Indication: ASTHMA
     Dosage: UNK
     Dates: start: 19780529

REACTIONS (4)
  - Palpitations [Recovered/Resolved]
  - Dizziness [Recovered/Resolved]
  - Tachycardia [Recovered/Resolved]
  - Dizziness [Recovered/Resolved]

NARRATIVE: CASE EVENT DATE: 20170704
